FAERS Safety Report 16866730 (Version 4)
Quarter: 2020Q1

REPORT INFORMATION
  Report Type: Report from Study
  Country: BR (occurrence: BR)
  Receive Date: 20190930
  Receipt Date: 20200326
  Transmission Date: 20200409
  Serious: Yes (Other)
  Sender: FDA-Public Use
  Company Number: PHHY2019BR193962

PATIENT
  Age: 64 Year
  Sex: Female
  Weight: 68 kg

DRUGS (14)
  1. ZOMETA [Suspect]
     Active Substance: ZOLEDRONIC ACID
     Indication: METASTASES TO BONE
     Dosage: UNK UNK, Q3MO
     Route: 042
  2. ZOMETA [Suspect]
     Active Substance: ZOLEDRONIC ACID
     Dosage: UNK
     Route: 042
     Dates: start: 201703
  3. ATENOLOL. [Concomitant]
     Active Substance: ATENOLOL
     Indication: PRODUCT USED FOR UNKNOWN INDICATION
     Route: 065
  4. KISQALI [Suspect]
     Active Substance: RIBOCICLIB
     Indication: BONE LESION
     Dosage: UNK, TID
     Route: 048
     Dates: start: 201908
  5. EUTHYROX [Concomitant]
     Active Substance: LEVOTHYROXINE SODIUM
     Indication: PRODUCT USED FOR UNKNOWN INDICATION
     Route: 065
  6. KISQALI [Suspect]
     Active Substance: RIBOCICLIB
     Indication: BREAST CANCER
     Dosage: 600 MG, QD (28 CYCLE DAYS) (TAKES 21 DAYS AND STOPS 7 DAYS)
     Route: 048
     Dates: start: 20190810
  7. ROSUVASTATIN. [Concomitant]
     Active Substance: ROSUVASTATIN
     Indication: BLOOD CHOLESTEROL ABNORMAL
     Dosage: UNK
     Route: 065
  8. ZOLPIDEM [Concomitant]
     Active Substance: ZOLPIDEM TARTRATE
     Indication: PRODUCT USED FOR UNKNOWN INDICATION
     Route: 065
  9. LETROZOLE. [Concomitant]
     Active Substance: LETROZOLE
     Indication: BREAST CANCER
     Dosage: 2.5 MG, QD
     Route: 048
     Dates: start: 20190626
  10. LETROZOLE. [Concomitant]
     Active Substance: LETROZOLE
     Dosage: 2.5 MG, QD
     Route: 048
     Dates: start: 20190626
  11. LETROZOLE. [Concomitant]
     Active Substance: LETROZOLE
     Dosage: UNK
     Route: 048
     Dates: start: 201907
  12. VENLAFAXINE HYDROCHLORIDE. [Concomitant]
     Active Substance: VENLAFAXINE HYDROCHLORIDE
     Indication: PRODUCT USED FOR UNKNOWN INDICATION
     Route: 065
  13. LETROZOLE. [Concomitant]
     Active Substance: LETROZOLE
     Dosage: 2.5 MG, QD
     Route: 048
     Dates: start: 20190626
  14. TRAMADOL HYDROCHLORIDE. [Concomitant]
     Active Substance: TRAMADOL HYDROCHLORIDE
     Indication: PRODUCT USED FOR UNKNOWN INDICATION
     Dosage: 50 MG
     Route: 065

REACTIONS (40)
  - Insomnia [Not Recovered/Not Resolved]
  - Memory impairment [Not Recovered/Not Resolved]
  - Diarrhoea [Recovered/Resolved]
  - Dyspepsia [Recovered/Resolved]
  - Constipation [Recovering/Resolving]
  - Gastric disorder [Recovered/Resolved]
  - Abdominal pain upper [Unknown]
  - Haemoglobin decreased [Unknown]
  - Amnesia [Not Recovered/Not Resolved]
  - Hunger [Recovered/Resolved]
  - Hypoaesthesia [Not Recovered/Not Resolved]
  - Eosinophil count decreased [Unknown]
  - Vision blurred [Unknown]
  - Anal incontinence [Unknown]
  - Hyperhidrosis [Not Recovered/Not Resolved]
  - Fall [Unknown]
  - Somnolence [Unknown]
  - Neutrophil count decreased [Unknown]
  - Snoring [Recovered/Resolved]
  - Oral discomfort [Recovered/Resolved]
  - Pain [Recovered/Resolved]
  - White blood cell count increased [Unknown]
  - Rhinorrhoea [Not Recovered/Not Resolved]
  - Dyspepsia [Unknown]
  - Increased appetite [Recovered/Resolved]
  - Burn oesophageal [Recovered/Resolved]
  - Dry skin [Not Recovered/Not Resolved]
  - Haemorrhoids [Recovering/Resolving]
  - Anal fissure [Recovering/Resolving]
  - Corrosive gastritis [Recovered/Resolved]
  - Haematochezia [Recovered/Resolved]
  - Pain in extremity [Not Recovered/Not Resolved]
  - General physical health deterioration [Not Recovered/Not Resolved]
  - Anal fissure haemorrhage [Recovering/Resolving]
  - Lacrimation increased [Unknown]
  - Malaise [Recovered/Resolved]
  - Leukopenia [Unknown]
  - Gastrointestinal sounds abnormal [Unknown]
  - Haematocrit decreased [Recovering/Resolving]
  - White blood cell count decreased [Unknown]

NARRATIVE: CASE EVENT DATE: 201908
